FAERS Safety Report 10154086 (Version 1)
Quarter: 2014Q2

REPORT INFORMATION
  Report Type: Report from Study
  Country: GB (occurrence: GB)
  Receive Date: 20140506
  Receipt Date: 20140506
  Transmission Date: 20141212
  Serious: Yes (Other)
  Sender: FDA-Public Use
  Company Number: GB-BAXTER-2014BAX021768

PATIENT
  Sex: 0

DRUGS (5)
  1. IFOSFAMIDE 40 MG/ML SOLUTION FOR INFUSION [Suspect]
     Indication: SARCOMA
     Dosage: 2.0 G/M2
     Route: 042
  2. MESNA INJECTION [Suspect]
     Indication: SARCOMA
     Route: 042
  3. MESNA INJECTION [Suspect]
     Route: 042
  4. MESNA INJECTION [Suspect]
     Route: 042
  5. SORAFENIB [Suspect]
     Indication: SARCOMA
     Route: 048

REACTIONS (1)
  - Incorrect dose administered [Unknown]
